FAERS Safety Report 8612643 (Version 2)
Quarter: 2014Q1

REPORT INFORMATION
  Report Type: Spontaneous
  Country: US (occurrence: None)
  Receive Date: 20120323
  Receipt Date: 20130305
  Transmission Date: 20141002
  Serious: Yes (Hospitalization)
  Sender: FDA-Public Use
  Company Number: 163-21880-11121518

PATIENT
  Age: 77 Year
  Sex: Male
  Weight: 92.4 kg

DRUGS (1)
  1. REVLIMID [Suspect]
     Indication: PLASMA CELL MYELOMA
     Dosage: 10 MG, 1 IN 1 D, PO
     Route: 048
     Dates: start: 201105

REACTIONS (7)
  - Thrombosis [None]
  - Urinary tract infection [None]
  - Pruritus [None]
  - Fatigue [None]
  - Platelet count decreased [None]
  - Diarrhoea [None]
  - Muscle strain [None]
